FAERS Safety Report 9473167 (Version 1)
Quarter: 2013Q3

REPORT INFORMATION
  Report Type: Spontaneous
  Country: US (occurrence: US)
  Receive Date: 20130823
  Receipt Date: 20130823
  Transmission Date: 20140515
  Serious: No
  Sender: FDA-Public Use
  Company Number: US-BRISTOL-MYERS SQUIBB COMPANY-18711465

PATIENT
  Age: 54 Year
  Sex: Male
  Weight: 88.43 kg

DRUGS (1)
  1. SPRYCEL [Suspect]
     Dosage: DECREASED AND STOPPED
     Dates: start: 201303

REACTIONS (6)
  - Chest pain [Recovered/Resolved]
  - Dyspnoea [Not Recovered/Not Resolved]
  - Anxiety [Unknown]
  - Fatigue [Unknown]
  - Abnormal behaviour [Unknown]
  - Insomnia [Unknown]
